FAERS Safety Report 15009575 (Version 1)
Quarter: 2018Q2

REPORT INFORMATION
  Report Type: Spontaneous
  Country: GB (occurrence: GB)
  Receive Date: 20180614
  Receipt Date: 20180614
  Transmission Date: 20180711
  Serious: Yes (Other)
  Sender: FDA-Public Use
  Company Number: GB-TEVA-2018-GB-906209

PATIENT
  Age: 25 Year
  Sex: Female
  Weight: 65 kg

DRUGS (2)
  1. ETONOGESTREL [Concomitant]
     Active Substance: ETONOGESTREL
     Route: 065
  2. AMLODIPINE [Suspect]
     Active Substance: AMLODIPINE BESYLATE
     Dates: start: 20170718

REACTIONS (1)
  - Bladder irritation [Recovered/Resolved]

NARRATIVE: CASE EVENT DATE: 20171101
